FAERS Safety Report 9604414 (Version 2)
Quarter: 2013Q4

REPORT INFORMATION
  Report Type: Spontaneous
  Country: US (occurrence: US)
  Receive Date: 20131008
  Receipt Date: 20131014
  Transmission Date: 20140711
  Serious: No
  Sender: FDA-Public Use
  Company Number: US-VERTEX PHARMACEUTICALS INC-2013-010191

PATIENT
  Age: 9 Year
  Sex: Female

DRUGS (3)
  1. KALYDECO [Suspect]
     Indication: CYSTIC FIBROSIS
     Dosage: 150 MG, BID
     Dates: start: 201210
  2. PULMOZYME [Concomitant]
     Indication: CYSTIC FIBROSIS
     Dosage: TAKE AT NIGHT
  3. PRILOSEC [Concomitant]

REACTIONS (2)
  - Chest pain [Not Recovered/Not Resolved]
  - Abdominal pain upper [Not Recovered/Not Resolved]
